FAERS Safety Report 7536417-6 (Version None)
Quarter: 2011Q2

REPORT INFORMATION
  Report Type: 
  Country: None (occurrence: None)
  Receive Date: 20110609
  Receipt Date: 20110526
  Transmission Date: 20111010
  Serious: Yes (Other)
  Sender: FDA-Public Use
  Company Number: US-JNJFOC-20110407225

PATIENT
  Sex: Male
  Weight: 78.02 kg

DRUGS (6)
  1. TYLENOL-500 [Concomitant]
     Indication: PREMEDICATION
     Route: 065
  2. REMICADE [Suspect]
     Indication: COLITIS ULCERATIVE
     Route: 042
  3. REMICADE [Suspect]
     Route: 042
     Dates: start: 20110302
  4. BENADRYL [Concomitant]
     Indication: PREMEDICATION
     Route: 065
  5. REMICADE [Suspect]
     Dosage: DOSE ALSO REPORTED AS 5 MG/KG
     Route: 042
     Dates: start: 20110414
  6. LIALDA [Concomitant]
     Indication: COLITIS ULCERATIVE
     Route: 065

REACTIONS (9)
  - PAIN [None]
  - ARTHRALGIA [None]
  - PRURITUS [None]
  - JOINT CONTRACTURE [None]
  - BACK PAIN [None]
  - INFUSION RELATED REACTION [None]
  - RASH [None]
  - PAIN IN EXTREMITY [None]
  - FLUSHING [None]
